FAERS Safety Report 16394231 (Version 2)
Quarter: 2019Q2

REPORT INFORMATION
  Report Type: Spontaneous
  Country: US (occurrence: US)
  Receive Date: 20190605
  Receipt Date: 20190611
  Transmission Date: 20190711
  Serious: Yes (Other)
  Sender: FDA-Public Use
  Company Number: US-ASTELLAS-2019US023488

PATIENT
  Age: 81 Year
  Sex: Male

DRUGS (1)
  1. XTANDI [Suspect]
     Active Substance: ENZALUTAMIDE
     Indication: PRODUCT USED FOR UNKNOWN INDICATION
     Dosage: UNK UNK, UNKNOWN FREQ.
     Route: 065
     Dates: start: 201801

REACTIONS (6)
  - Peripheral swelling [Unknown]
  - Visual impairment [Unknown]
  - Eye haemorrhage [Unknown]
  - Vision blurred [Unknown]
  - Blindness [Unknown]
  - Joint swelling [Unknown]

NARRATIVE: CASE EVENT DATE: 201905
